FAERS Safety Report 17939029 (Version 18)
Quarter: 2024Q4

REPORT INFORMATION
  Report Type: Report from Study
  Country: CN (occurrence: CN)
  Receive Date: 20200625
  Receipt Date: 20241227
  Transmission Date: 20250115
  Serious: Yes (Other)
  Sender: ROCHE
  Company Number: CN-ROCHE-2351223

PATIENT
  Age: 52 Year
  Sex: Male
  Weight: 66.0 kg

DRUGS (5)
  1. AVASTIN [Suspect]
     Active Substance: BEVACIZUMAB
     Indication: Non-small cell lung cancer
     Route: 041
     Dates: start: 20170413, end: 20230406
  2. AVASTIN [Suspect]
     Active Substance: BEVACIZUMAB
     Route: 041
     Dates: end: 20230810
  3. AVASTIN [Suspect]
     Active Substance: BEVACIZUMAB
     Route: 041
     Dates: end: 20231221
  4. AVASTIN [Suspect]
     Active Substance: BEVACIZUMAB
     Route: 041
     Dates: end: 20240418
  5. AVASTIN [Suspect]
     Active Substance: BEVACIZUMAB
     Route: 041
     Dates: end: 20240808

REACTIONS (21)
  - Myelosuppression [Not Recovered/Not Resolved]
  - Asthenia [Unknown]
  - Renal impairment [Unknown]
  - Hypotension [Unknown]
  - Vascular rupture [Unknown]
  - White blood cell count decreased [Unknown]
  - Immunodeficiency [Unknown]
  - Myocardial infarction [Unknown]
  - Brain natriuretic peptide increased [Recovering/Resolving]
  - Troponin increased [Recovering/Resolving]
  - Blood creatine phosphokinase increased [Recovering/Resolving]
  - Myoglobin urine present [Recovering/Resolving]
  - Protein urine present [Unknown]
  - Cardiac function test abnormal [Unknown]
  - Ejection fraction decreased [Unknown]
  - Acute coronary syndrome [Unknown]
  - Protein urine [Unknown]
  - Coronary artery disease [Unknown]
  - Chest pain [Recovered/Resolved]
  - Acute coronary syndrome [Recovered/Resolved]
  - Dermatitis allergic [Unknown]

NARRATIVE: CASE EVENT DATE: 20200924
